FAERS Safety Report 5894108-1 (Version None)
Quarter: 2008Q3

REPORT INFORMATION
  Report Type: 
  Country: None (occurrence: None)
  Receive Date: 20080923
  Receipt Date: 20080103
  Transmission Date: 20090109
  Serious: No
  Sender: FDA-Public Use
  Company Number: US-ASTRAZENECA-2008UW00291

PATIENT
  Age: 90 Year
  Sex: Male

DRUGS (5)
  1. SEROQUEL [Suspect]
     Indication: DEMENTIA ALZHEIMER'S TYPE
     Route: 048
  2. SEROQUEL [Suspect]
     Dosage: LESS THAN 25 MG IN THE MORNING AND THE EVENING
     Route: 048
  3. NAMENDA [Concomitant]
  4. FLOMAX [Concomitant]
  5. UNSPECIFIED HYPERTENSION MEDICATION [Concomitant]
     Indication: HYPERTENSION

REACTIONS (4)
  - ANGER [None]
  - ANXIETY [None]
  - FATIGUE [None]
  - VISUAL IMPAIRMENT [None]
